FAERS Safety Report 25180688 (Version 2)
Quarter: 2025Q2

REPORT INFORMATION
  Report Type: Spontaneous
  Country: BE (occurrence: BE)
  Receive Date: 20250409
  Receipt Date: 20250415
  Transmission Date: 20250716
  Serious: Yes (Death, Other)
  Sender: GILEAD
  Company Number: None

PATIENT
  Age: 59 Year
  Sex: Female

DRUGS (12)
  1. YESCARTA [Suspect]
     Active Substance: AXICABTAGENE CILOLEUCEL
     Indication: Diffuse large B-cell lymphoma refractory
     Route: 042
     Dates: start: 20250203, end: 20250203
  2. DIFLUCAN [Concomitant]
     Active Substance: FLUCONAZOLE
     Dosage: 1 DOSAGE FORM, QD
  3. ACYCLOVIR [Concomitant]
     Active Substance: ACYCLOVIR
     Dosage: 2 DOSAGE FORM, QD
  4. CEFEPIME [Concomitant]
     Active Substance: CEFEPIME HYDROCHLORIDE
     Dosage: 2G 3X/J
  5. FASTURTEC [Concomitant]
     Active Substance: RASBURICASE
  6. FASTURTEC [Concomitant]
     Active Substance: RASBURICASE
  7. MAGNESIUM [Concomitant]
     Active Substance: MAGNESIUM
     Dosage: 2 G, QD
  8. KCL [Concomitant]
     Active Substance: POTASSIUM CHLORIDE
  9. KCL [Concomitant]
     Active Substance: POTASSIUM CHLORIDE
  10. DEXPANTHENOL [Concomitant]
     Active Substance: DEXPANTHENOL
     Dosage: 1 DOSAGE FORM, QD
  11. XANAX [Concomitant]
     Active Substance: ALPRAZOLAM
     Dosage: 1 DOSAGE FORM, QD
  12. TRAZODONE [Concomitant]
     Active Substance: TRAZODONE HYDROCHLORIDE
     Dosage: 1 DOSAGE FORM, QD

REACTIONS (9)
  - Myelopathy [Fatal]
  - Spinal cord ischaemia [Fatal]
  - Quadriplegia [Fatal]
  - Cytokine release syndrome [Fatal]
  - Immune effector cell-associated neurotoxicity syndrome [Fatal]
  - New onset refractory status epilepticus [Fatal]
  - Fungal infection [Fatal]
  - Enterococcal infection [Fatal]
  - Bacterial infection [Fatal]

NARRATIVE: CASE EVENT DATE: 20250204
